FAERS Safety Report 20694228 (Version 1)
Quarter: 2022Q2

REPORT INFORMATION
  Report Type: Spontaneous
  Country: JP (occurrence: JP)
  Receive Date: 20220411
  Receipt Date: 20220411
  Transmission Date: 20220721
  Serious: Yes (Death, Other)
  Sender: FDA-Public Use
  Company Number: JP-TAKEDA-2022TJP028667

PATIENT
  Age: 67 Year
  Sex: Male
  Weight: 81 kg

DRUGS (5)
  1. VECTIBIX [Suspect]
     Active Substance: PANITUMUMAB
     Indication: Metastases to lymph nodes
     Dosage: 6 MILLIGRAM/KILOGRAM
     Route: 050
     Dates: start: 201709, end: 2018
  2. LEUCOVORIN [Concomitant]
     Active Substance: LEUCOVORIN
     Indication: Metastases to lymph nodes
     Dosage: 200 MILLIGRAM/SQ. METER
     Route: 065
     Dates: start: 201709, end: 201812
  3. OXALIPLATIN [Concomitant]
     Active Substance: OXALIPLATIN
     Indication: Metastases to lymph nodes
     Dosage: 85 MILLIGRAM/SQ. METER
     Route: 065
     Dates: start: 201709, end: 2018
  4. FLUOROURACIL [Concomitant]
     Active Substance: FLUOROURACIL
     Indication: Metastases to lymph nodes
     Dosage: 400 MILLIGRAM/SQ. METER
     Route: 040
     Dates: start: 201709, end: 201812
  5. FLUOROURACIL [Concomitant]
     Active Substance: FLUOROURACIL
     Dosage: 2400 MILLIGRAM/SQ. METER
     Route: 050
     Dates: start: 201709, end: 201812

REACTIONS (2)
  - Death [Fatal]
  - Hypomagnesaemia [Unknown]
